FAERS Safety Report 8906211 (Version 1)
Quarter: 2012Q4

REPORT INFORMATION
  Report Type: Spontaneous
  Country: US (occurrence: None)
  Receive Date: 20121112
  Receipt Date: 20121112
  Transmission Date: 20130627
  Serious: No
  Sender: FDA-Public Use
  Company Number: None

PATIENT
  Age: 33 Year
  Sex: Female
  Weight: 68.04 kg

DRUGS (2)
  1. CREST PRO-HEALTH RINSE [Suspect]
     Indication: DENTAL FLUORIDE THERAPY
     Dosage: Rinse and spit   Daily  po
     Route: 048
     Dates: start: 20121004, end: 20121111
  2. CREST PRO-HEALTH RINSE [Suspect]
     Indication: DENTAL FLUORIDE THERAPY
     Dates: start: 20121111, end: 20121111

REACTIONS (1)
  - Tooth discolouration [None]
